FAERS Safety Report 5518341-3 (Version None)
Quarter: 2007Q4

REPORT INFORMATION
  Report Type: 
  Country: None (occurrence: None)
  Receive Date: 20071113
  Receipt Date: 20071113
  Transmission Date: 20080405
  Serious: No
  Sender: FDA-Public Use
  Company Number: None

PATIENT
  Age: 67 Year
  Sex: Female

DRUGS (7)
  1. ZOLOFT [Suspect]
     Indication: DEPRESSION
     Dosage: 100 MG  DAILY  PO
     Route: 048
     Dates: start: 20060922, end: 20061013
  2. N-ACETYLCYSTEINE [Concomitant]
  3. ALBUTEROL [Concomitant]
  4. XANAX [Concomitant]
  5. LOPERAMIDE HCL [Concomitant]
  6. ZANTAC [Concomitant]
  7. VANCOMYCIN [Concomitant]

REACTIONS (1)
  - INAPPROPRIATE ANTIDIURETIC HORMONE SECRETION [None]
